FAERS Safety Report 11512673 (Version 1)
Quarter: 2015Q3

REPORT INFORMATION
  Report Type: Spontaneous
  Country: FR (occurrence: FR)
  Receive Date: 20150916
  Receipt Date: 20150916
  Transmission Date: 20151125
  Serious: Yes (Hospitalization)
  Sender: FDA-Public Use
  Company Number: FR-PFIZER INC-2015296035

PATIENT
  Age: 65 Year
  Sex: Female

DRUGS (36)
  1. LASILIX /00032601/ [Suspect]
     Active Substance: FUROSEMIDE
     Dosage: 40 MG, 1X/DAY
     Route: 048
     Dates: start: 20150708
  2. SOLUPRED /00016201/ [Suspect]
     Active Substance: PREDNISOLONE
     Dosage: 40 MG, 1X/DAY
     Route: 048
     Dates: start: 20150520, end: 20150822
  3. TOPALGIC LP [Suspect]
     Active Substance: TRAMADOL
     Dosage: 150 MG, 2X/DAY
     Route: 048
     Dates: start: 20150520, end: 20150822
  4. ARANESP [Suspect]
     Active Substance: DARBEPOETIN ALFA
     Dosage: 150 ?G, SINGLE
     Dates: start: 20150810
  5. METHYLPREDNISOLONE MYLAN /00049602/ [Suspect]
     Active Substance: METHYLPREDNISOLONE SODIUM SUCCINATE
     Dosage: 80 MG, SINGLE
     Route: 041
     Dates: start: 20150624
  6. METHYLPREDNISOLONE MYLAN /00049602/ [Suspect]
     Active Substance: METHYLPREDNISOLONE SODIUM SUCCINATE
     Dosage: 80 MG, SINGLE
     Route: 041
     Dates: start: 20150708
  7. GEMZAR [Suspect]
     Active Substance: GEMCITABINE HYDROCHLORIDE
     Dosage: 1596 MG, DAILY
     Route: 041
     Dates: start: 20150603
  8. PLITICAN [Suspect]
     Active Substance: ALIZAPRIDE HYDROCHLORIDE
     Dosage: 100 MG, SINGLE
     Route: 041
     Dates: start: 20150708
  9. LAROXYL [Suspect]
     Active Substance: AMITRIPTYLINE
     Dosage: UNK
     Dates: start: 20150527, end: 20150708
  10. GEMZAR [Suspect]
     Active Substance: GEMCITABINE HYDROCHLORIDE
     Dosage: 1558 MG, DAILY
     Route: 041
     Dates: start: 20150715
  11. GEMZAR [Suspect]
     Active Substance: GEMCITABINE HYDROCHLORIDE
     Dosage: 1558 MG, DAILY
     Route: 041
     Dates: start: 20150729
  12. PLITICAN [Suspect]
     Active Substance: ALIZAPRIDE HYDROCHLORIDE
     Dosage: 100 MG, SINGLE
     Route: 041
     Dates: start: 20150603
  13. ARANESP [Suspect]
     Active Substance: DARBEPOETIN ALFA
     Dosage: 150 ?G, SINGLE
     Dates: start: 20150803
  14. METHYLPREDNISOLONE MYLAN /00049602/ [Suspect]
     Active Substance: METHYLPREDNISOLONE SODIUM SUCCINATE
     Indication: LEIOMYOSARCOMA RECURRENT
     Dosage: 80 MG, SINGLE
     Route: 041
     Dates: start: 20150527
  15. LYRICA [Suspect]
     Active Substance: PREGABALIN
     Dosage: 25 MG, 2X/DAY
     Route: 048
     Dates: start: 20150520, end: 20150810
  16. VIALEBEX [Suspect]
     Active Substance: ALBUMIN (HUMAN)
     Dosage: 20 G, SINGLE
     Route: 041
     Dates: start: 20150721
  17. ARANESP [Suspect]
     Active Substance: DARBEPOETIN ALFA
     Dosage: 150 ?G, UNK
     Dates: start: 20150702
  18. ARANESP [Suspect]
     Active Substance: DARBEPOETIN ALFA
     Dosage: 150 ?G, SINGLE
     Dates: start: 20150708
  19. GEMZAR [Suspect]
     Active Substance: GEMCITABINE HYDROCHLORIDE
     Dosage: 1558 MG, DAILY
     Route: 041
     Dates: start: 20150617
  20. GEMZAR [Suspect]
     Active Substance: GEMCITABINE HYDROCHLORIDE
     Dosage: 1558 MG, DAILY
     Route: 041
     Dates: start: 20150708
  21. METHYLPREDNISOLONE MYLAN /00049602/ [Suspect]
     Active Substance: METHYLPREDNISOLONE SODIUM SUCCINATE
     Dosage: 80 MG, SINGLE
     Route: 041
     Dates: start: 20150715
  22. METHYLPREDNISOLONE MYLAN /00049602/ [Suspect]
     Active Substance: METHYLPREDNISOLONE SODIUM SUCCINATE
     Dosage: 80 MG, SINGLE
     Route: 041
     Dates: start: 20150729
  23. GEMZAR [Suspect]
     Active Substance: GEMCITABINE HYDROCHLORIDE
     Indication: LEIOMYOSARCOMA RECURRENT
     Dosage: 1596 MG, DAILY
     Route: 041
     Dates: start: 20150527
  24. VIALEBEX [Suspect]
     Active Substance: ALBUMIN (HUMAN)
     Dosage: 20 G, 2X/DAY
     Route: 041
     Dates: start: 20150813
  25. ARANESP [Suspect]
     Active Substance: DARBEPOETIN ALFA
     Indication: ANAEMIA
     Dosage: 150 ?G, SINGLE
     Dates: start: 20150527
  26. ARANESP [Suspect]
     Active Substance: DARBEPOETIN ALFA
     Dosage: 150 ?G, SINGLE
     Dates: start: 20150721
  27. METHYLPREDNISOLONE MYLAN /00049602/ [Suspect]
     Active Substance: METHYLPREDNISOLONE SODIUM SUCCINATE
     Dosage: 80 MG, SINGLE
     Route: 041
     Dates: start: 20150603
  28. GEMZAR [Suspect]
     Active Substance: GEMCITABINE HYDROCHLORIDE
     Dosage: 1558 MG, DAILY
     Route: 041
     Dates: start: 20150624
  29. PLITICAN [Suspect]
     Active Substance: ALIZAPRIDE HYDROCHLORIDE
     Dosage: 100 MG, SINGLE
     Route: 041
     Dates: start: 20150729
  30. VIALEBEX [Suspect]
     Active Substance: ALBUMIN (HUMAN)
     Dosage: 20 G, SINGLE
     Route: 041
     Dates: start: 20150824
  31. OMEPRAZOLE. [Suspect]
     Active Substance: OMEPRAZOLE
     Dosage: 40 MG, 1X/DAY
     Route: 048
     Dates: start: 20150520, end: 20150821
  32. PRIMPERAN [Suspect]
     Active Substance: METOCLOPRAMIDE HYDROCHLORIDE
     Indication: PROPHYLAXIS OF NAUSEA AND VOMITING
     Dosage: 10 MG, SINGLE
     Route: 048
     Dates: start: 20150617, end: 20150617
  33. PRIMPERAN [Suspect]
     Active Substance: METOCLOPRAMIDE HYDROCHLORIDE
     Dosage: 10 MG, SINGLE
     Route: 048
     Dates: start: 20150715, end: 20150715
  34. METHYLPREDNISOLONE MYLAN /00049602/ [Suspect]
     Active Substance: METHYLPREDNISOLONE SODIUM SUCCINATE
     Dosage: 80 MG, SINGLE
     Route: 041
     Dates: start: 20150617
  35. PLITICAN [Suspect]
     Active Substance: ALIZAPRIDE HYDROCHLORIDE
     Indication: PROPHYLAXIS OF NAUSEA AND VOMITING
     Dosage: 100 MG, SINGLE
     Route: 041
     Dates: start: 20150527
  36. PLITICAN [Suspect]
     Active Substance: ALIZAPRIDE HYDROCHLORIDE
     Dosage: 100 MG, SINGLE
     Route: 041
     Dates: start: 20150624

REACTIONS (1)
  - Toxic epidermal necrolysis [Unknown]

NARRATIVE: CASE EVENT DATE: 20150801
